FAERS Safety Report 9435461 (Version 1)
Quarter: 2013Q3

REPORT INFORMATION
  Report Type: Spontaneous
  Country: AU (occurrence: None)
  Receive Date: 20130730
  Receipt Date: 20130730
  Transmission Date: 20140515
  Serious: Yes (Death, Hospitalization)
  Sender: FDA-Public Use
  Company Number: 149730

PATIENT
  Age: 54 Year
  Sex: Male

DRUGS (4)
  1. CARBOPLATIN [Suspect]
     Indication: NEUROENDOCRINE TUMOUR
  2. CARBOPLATIN [Suspect]
     Indication: METASTASIS
  3. ETOPOSIDE [Suspect]
     Indication: NEUROENDOCRINE TUMOUR
  4. ETOPOSIDE [Suspect]
     Indication: METASTASIS

REACTIONS (6)
  - Disseminated intravascular coagulation [None]
  - Haemoglobin decreased [None]
  - Haematuria [None]
  - Dyspnoea [None]
  - Angina pectoris [None]
  - General physical health deterioration [None]
